FAERS Safety Report 23192960 (Version 1)
Quarter: 2023Q4

REPORT INFORMATION
  Report Type: Report from Study
  Country: DE (occurrence: DE)
  Receive Date: 20231116
  Receipt Date: 20231116
  Transmission Date: 20240110
  Serious: Yes (Hospitalization, Other)
  Sender: FDA-Public Use
  Company Number: DE-MYLANLABS-2022M1084036

PATIENT
  Sex: Female

DRUGS (28)
  1. METHOTREXATE [Suspect]
     Active Substance: METHOTREXATE
     Indication: Rheumatoid arthritis
     Route: 065
  2. METHOTREXATE [Suspect]
     Active Substance: METHOTREXATE
     Indication: Rheumatoid arthritis
     Route: 065
     Dates: start: 20141002
  3. METHOTREXATE [Suspect]
     Active Substance: METHOTREXATE
     Indication: Rheumatoid arthritis
     Route: 065
     Dates: start: 20200604
  4. METHOTREXATE [Suspect]
     Active Substance: METHOTREXATE
     Indication: Rheumatoid arthritis
     Route: 065
     Dates: start: 20151006
  5. METHOTREXATE [Suspect]
     Active Substance: METHOTREXATE
     Indication: Rheumatoid arthritis
     Route: 065
     Dates: start: 20131017
  6. METHOTREXATE [Suspect]
     Active Substance: METHOTREXATE
     Indication: Rheumatoid arthritis
     Route: 065
     Dates: start: 20230406
  7. METHOTREXATE [Suspect]
     Active Substance: METHOTREXATE
     Indication: Rheumatoid arthritis
     Route: 065
     Dates: start: 20220117
  8. METHOTREXATE [Suspect]
     Active Substance: METHOTREXATE
     Indication: Rheumatoid arthritis
     Route: 065
     Dates: start: 20181203
  9. METHOTREXATE [Suspect]
     Active Substance: METHOTREXATE
     Indication: Rheumatoid arthritis
     Route: 065
     Dates: start: 20150330
  10. METHOTREXATE [Suspect]
     Active Substance: METHOTREXATE
     Indication: Rheumatoid arthritis
     Route: 065
     Dates: start: 20140114
  11. METHOTREXATE [Suspect]
     Active Substance: METHOTREXATE
     Indication: Rheumatoid arthritis
     Route: 065
     Dates: start: 20140401
  12. METHOTREXATE [Suspect]
     Active Substance: METHOTREXATE
     Indication: Rheumatoid arthritis
     Route: 065
     Dates: start: 20191216
  13. METHOTREXATE [Suspect]
     Active Substance: METHOTREXATE
     Indication: Rheumatoid arthritis
     Route: 065
     Dates: start: 20221222
  14. METHOTREXATE [Suspect]
     Active Substance: METHOTREXATE
     Indication: Rheumatoid arthritis
     Route: 065
     Dates: start: 20170403
  15. METHOTREXATE [Suspect]
     Active Substance: METHOTREXATE
     Indication: Rheumatoid arthritis
     Route: 065
     Dates: start: 20160405
  16. METHOTREXATE [Suspect]
     Active Substance: METHOTREXATE
     Indication: Rheumatoid arthritis
     Route: 065
     Dates: start: 20190527
  17. METHOTREXATE [Suspect]
     Active Substance: METHOTREXATE
     Indication: Rheumatoid arthritis
     Route: 065
     Dates: start: 20210624
  18. METHOTREXATE [Suspect]
     Active Substance: METHOTREXATE
     Indication: Rheumatoid arthritis
     Route: 065
     Dates: start: 20180625
  19. METHOTREXATE [Suspect]
     Active Substance: METHOTREXATE
     Indication: Rheumatoid arthritis
     Route: 065
     Dates: start: 20171002
  20. Hydroxychloroquine [HYDROXYCHLOROQUINE] [Concomitant]
     Indication: Rheumatoid arthritis
     Route: 065
     Dates: start: 20140114
  21. Hydroxychloroquine [HYDROXYCHLOROQUINE] [Concomitant]
     Indication: Rheumatoid arthritis
     Route: 065
     Dates: start: 20170403
  22. Hydroxychloroquine [HYDROXYCHLOROQUINE] [Concomitant]
     Indication: Rheumatoid arthritis
     Route: 065
     Dates: start: 20150330
  23. Hydroxychloroquine [HYDROXYCHLOROQUINE] [Concomitant]
     Indication: Rheumatoid arthritis
     Route: 065
     Dates: start: 20141002
  24. Hydroxychloroquine [HYDROXYCHLOROQUINE] [Concomitant]
     Indication: Rheumatoid arthritis
     Route: 065
     Dates: start: 20140401
  25. Hydroxychloroquine [HYDROXYCHLOROQUINE] [Concomitant]
     Indication: Rheumatoid arthritis
     Route: 065
     Dates: start: 20131017
  26. Hydroxychloroquine [HYDROXYCHLOROQUINE] [Concomitant]
     Indication: Rheumatoid arthritis
     Route: 065
     Dates: start: 20171002
  27. Hydroxychloroquine [HYDROXYCHLOROQUINE] [Concomitant]
     Indication: Rheumatoid arthritis
     Route: 065
     Dates: start: 20151006
  28. Hydroxychloroquine [HYDROXYCHLOROQUINE] [Concomitant]
     Indication: Rheumatoid arthritis
     Route: 065
     Dates: start: 20160405

REACTIONS (3)
  - Lumbar vertebral fracture [Unknown]
  - Atrial fibrillation [Unknown]
  - Pneumonia [Recovered/Resolved]

NARRATIVE: CASE EVENT DATE: 20210901
